FAERS Safety Report 11551122 (Version 2)
Quarter: 2015Q4

REPORT INFORMATION
  Report Type: Spontaneous
  Country: US (occurrence: US)
  Receive Date: 20150925
  Receipt Date: 20151225
  Transmission Date: 20160304
  Serious: No
  Sender: FDA-Public Use
  Company Number: US-AMGEN-USASP2015098616

PATIENT
  Age: 12 Year
  Sex: Male

DRUGS (2)
  1. ENBREL [Suspect]
     Active Substance: ETANERCEPT
     Indication: APHTHOUS ULCER
  2. ENBREL [Suspect]
     Active Substance: ETANERCEPT
     Indication: EHLERS-DANLOS SYNDROME
     Dosage: 25 MG, QWK
     Route: 065
     Dates: start: 2014

REACTIONS (2)
  - Needle issue [Unknown]
  - Off label use [Unknown]

NARRATIVE: CASE EVENT DATE: 2014
